FAERS Safety Report 17843136 (Version 1)
Quarter: 2020Q2

REPORT INFORMATION
  Report Type: Spontaneous
  Country: FR (occurrence: FR)
  Receive Date: 20200530
  Receipt Date: 20200530
  Transmission Date: 20200714
  Serious: Yes (Death, Other)
  Sender: FDA-Public Use
  Company Number: FR-AUROBINDO-AUR-APL-2020-026391

PATIENT
  Weight: .71 kg

DRUGS (14)
  1. CEFTAZIDIME. [Suspect]
     Active Substance: CEFTAZIDIME
     Indication: SEPSIS
     Dosage: 50 MILLIGRAM/KILOGRAM, TWO TIMES A DAY
     Route: 065
     Dates: start: 20190615, end: 20190616
  2. FOLINIC ACID [Concomitant]
     Active Substance: LEUCOVORIN
     Indication: PRODUCT USED FOR UNKNOWN INDICATION
     Dosage: 25 MILLIGRAM, ONCE A DAY, 25 MG OF 5 MG/2 ML
     Route: 048
     Dates: start: 20190612, end: 20190615
  3. SODIUM CHLORIDE. [Concomitant]
     Active Substance: SODIUM CHLORIDE
     Indication: PRODUCT USED FOR UNKNOWN INDICATION
     Dosage: 20 MILLILITRE PER KILOGRAM
     Route: 065
     Dates: start: 20190616
  4. VANCOMYCIN [Suspect]
     Active Substance: VANCOMYCIN
     Indication: SEPSIS
     Dosage: 7 MILLIGRAM/KILOGRAM
     Route: 042
     Dates: start: 20190615
  5. VANCOMYCIN [Suspect]
     Active Substance: VANCOMYCIN
     Dosage: 30 MILLIGRAM/KILOGRAM, ONCE A DAY
     Route: 042
     Dates: end: 20190616
  6. MORPHINE [Concomitant]
     Active Substance: MORPHINE
     Indication: PRODUCT USED FOR UNKNOWN INDICATION
     Dosage: 40 MICROGRAM/KILOGRAM, EVERY HOUR, CONTINUOUS PERFUSION ON EPICUTANEOU-CAVA CATHETER
     Route: 065
     Dates: start: 20190605, end: 20190616
  7. FERROUS SULFATE. [Concomitant]
     Active Substance: FERROUS SULFATE
     Indication: PRODUCT USED FOR UNKNOWN INDICATION
     Dosage: 3 MILLIGRAM/KILOGRAM, TWO TIMES A DAY, OF 125 MG
     Route: 065
     Dates: start: 20190612, end: 20190615
  8. NEORECORMON [Concomitant]
     Active Substance: ERYTHROPOIETIN
     Indication: PRODUCT USED FOR UNKNOWN INDICATION
     Dosage: 250 INTERNATIONAL UNIT/KILOGRAM, Q3W
     Route: 065
     Dates: start: 20190612, end: 20190614
  9. MIDAZOLAM. [Concomitant]
     Active Substance: MIDAZOLAM
     Indication: PRODUCT USED FOR UNKNOWN INDICATION
     Dosage: UNK, 50 TO 100 MICROG/KG, AFTERWARDS 60 MICROGRAMS/KG/H
     Route: 065
     Dates: start: 20190615, end: 20190616
  10. ADRENALINE [Concomitant]
     Active Substance: EPINEPHRINE
     Indication: BRADYCARDIA
     Dosage: UNK, 10 TO 30 MICROG/KG REPEATEDLY (MAX 1MG /DOSE
     Route: 065
  11. KINOX [Concomitant]
     Indication: PRODUCT USED FOR UNKNOWN INDICATION
     Dosage: UNK
     Route: 065
     Dates: start: 20190616
  12. METRONIDAZOLE. [Suspect]
     Active Substance: METRONIDAZOLE
     Indication: SEPSIS
     Dosage: 7.5 MILLIGRAM/KILOGRAM
     Route: 042
     Dates: start: 20190615, end: 20190616
  13. AMIKACINE [Suspect]
     Active Substance: AMIKACIN
     Indication: SEPSIS
     Dosage: 15 MILLIGRAM/KILOGRAM
     Route: 042
     Dates: start: 20190615, end: 20190616
  14. ZYMAD [Concomitant]
     Active Substance: CHOLECALCIFEROL
     Indication: PRODUCT USED FOR UNKNOWN INDICATION
     Dosage: 1200 INTERNATIONAL UNIT, ONCE A DAY
     Route: 065
     Dates: start: 20190605, end: 20190615

REACTIONS (4)
  - Jaundice [Unknown]
  - Haemodynamic instability [Unknown]
  - Septic shock [Fatal]
  - Cerebral haemorrhage [Unknown]

NARRATIVE: CASE EVENT DATE: 20190615
